FAERS Safety Report 6055323-X (Version None)
Quarter: 2009Q1

REPORT INFORMATION
  Report Type: 
  Country: None (occurrence: None)
  Receive Date: 20090122
  Receipt Date: 20090119
  Transmission Date: 20090719
  Serious: Yes (Other)
  Sender: FDA-Public Use
  Company Number: CERZ-1000451

PATIENT
  Age: 76 Year
  Sex: Female

DRUGS (6)
  1. CEREZYME [Suspect]
     Indication: GAUCHER'S DISEASE
     Dosage: 2200 U, Q2W, INTRAVENOUS
     Route: 042
     Dates: start: 20010101
  2. COUMADIN [Concomitant]
  3. NEXIAM (ESOMEPRAZOLE) [Concomitant]
  4. ATENOLOL [Concomitant]
  5. TRIAMTEREN HCT (HYDROCHLOROTHIAZIDE, TRIAMTERENE) [Concomitant]
  6. XALATAN [Concomitant]

REACTIONS (1)
  - BREAST MASS [None]
